FAERS Safety Report 13296204 (Version 1)
Quarter: 2017Q1

REPORT INFORMATION
  Report Type: Report from Study
  Country: US (occurrence: US)
  Receive Date: 20170304
  Receipt Date: 20170304
  Transmission Date: 20170428
  Serious: Yes (Hospitalization)
  Sender: FDA-Public Use
  Company Number: US-GILEAD-2017-0260063

PATIENT
  Age: 72 Year
  Sex: Male

DRUGS (15)
  1. WARFARIN [Concomitant]
     Active Substance: WARFARIN
  2. RENA-VITE [Concomitant]
     Active Substance: ASCORBIC ACID\BIOTIN\CALCIUM PANTOTHENATE\CYANOCOBALAMIN\FOLIC ACID\NIACINAMIDE\PYRIDOXINE HYDROCHLORIDE\RIBOFLAVIN\THIAMINE MONONITRATE
  3. AMBRISENTAN [Suspect]
     Active Substance: AMBRISENTAN
     Indication: CONNECTIVE TISSUE DISORDER
  4. OXYGEN. [Concomitant]
     Active Substance: OXYGEN
  5. METOPROLOL. [Concomitant]
     Active Substance: METOPROLOL
  6. ONDANSETRON [Concomitant]
     Active Substance: ONDANSETRON
  7. MELATONIN [Concomitant]
     Active Substance: MELATONIN
  8. AMBRISENTAN [Suspect]
     Active Substance: AMBRISENTAN
     Indication: PULMONARY HYPERTENSION
     Dosage: 5 MG, QD
     Route: 048
     Dates: start: 20160506
  9. AMBRISENTAN [Suspect]
     Active Substance: AMBRISENTAN
     Indication: HEART DISEASE CONGENITAL
  10. TRAMADOL. [Concomitant]
     Active Substance: TRAMADOL
  11. OMEPRAZOLE. [Concomitant]
     Active Substance: OMEPRAZOLE
  12. GABAPENTIN. [Concomitant]
     Active Substance: GABAPENTIN
  13. SILDENAFIL. [Concomitant]
     Active Substance: SILDENAFIL
  14. TAMSULOSIN [Concomitant]
     Active Substance: TAMSULOSIN
  15. PROCRIT [Concomitant]
     Active Substance: ERYTHROPOIETIN

REACTIONS (4)
  - Asthenia [Unknown]
  - Chest pain [Unknown]
  - Abdominal pain upper [Unknown]
  - Fall [Unknown]

NARRATIVE: CASE EVENT DATE: 20170206
